APPROVED DRUG PRODUCT: LIDOCAINE HYDROCHLORIDE
Active Ingredient: LIDOCAINE HYDROCHLORIDE
Strength: 4%
Dosage Form/Route: SOLUTION;TOPICAL
Application: A204494 | Product #001 | TE Code: AT
Applicant: PAI HOLDINGS LLC DBA PHARMACEUTICAL ASSOCIATES INC
Approved: Mar 12, 2014 | RLD: No | RS: No | Type: RX